FAERS Safety Report 6343252-3 (Version None)
Quarter: 2009Q3

REPORT INFORMATION
  Report Type: 
  Country: None (occurrence: None)
  Receive Date: 20090908
  Receipt Date: 20090827
  Transmission Date: 20100115
  Serious: Yes (Other)
  Sender: FDA-Public Use
  Company Number: PHHY2009JP36650

PATIENT
  Sex: Female
  Weight: 50 kg

DRUGS (9)
  1. COMTAN [Suspect]
     Indication: DRUG EFFECT DECREASED
     Dosage: 100 MG, TID
     Route: 048
     Dates: start: 20090401, end: 20090401
  2. DEZOLAM [Concomitant]
     Dosage: UNK
  3. FAMOTIDINE [Concomitant]
  4. RONFLEMAN [Concomitant]
  5. MENESIT [Concomitant]
  6. NAUZELIN [Concomitant]
  7. SYMMETREL [Concomitant]
  8. DROXIDOPA [Concomitant]
  9. RENIVEZE [Concomitant]

REACTIONS (8)
  - ALANINE AMINOTRANSFERASE INCREASED [None]
  - ASPARTATE AMINOTRANSFERASE INCREASED [None]
  - BLOOD ALKALINE PHOSPHATASE INCREASED [None]
  - FACE OEDEMA [None]
  - GAMMA-GLUTAMYLTRANSFERASE INCREASED [None]
  - HENOCH-SCHONLEIN PURPURA [None]
  - HEPATIC FUNCTION ABNORMAL [None]
  - PURPURA [None]
